FAERS Safety Report 9985724 (Version 1)
Quarter: 2014Q1

REPORT INFORMATION
  Report Type: Spontaneous
  Country: US (occurrence: US)
  Receive Date: 20140307
  Receipt Date: 20140307
  Transmission Date: 20141002
  Serious: No
  Sender: FDA-Public Use
  Company Number: US-009507513-1403USA002673

PATIENT
  Age: 78 Year
  Sex: Female

DRUGS (3)
  1. FOSAMAX [Suspect]
     Route: 048
  2. EVISTA [Suspect]
  3. CALCITONIN [Concomitant]
     Dosage: UNK

REACTIONS (4)
  - Somnolence [Unknown]
  - Bone disorder [Unknown]
  - Decreased appetite [Unknown]
  - Asthenia [Unknown]
